FAERS Safety Report 4704813-8 (Version None)
Quarter: 2005Q3

REPORT INFORMATION
  Report Type: 
  Country: None (occurrence: None)
  Receive Date: 20050701
  Receipt Date: 20040608
  Transmission Date: 20060218
  Serious: No
  Sender: FDA-Public Use
  Company Number: US-GLAXOSMITHKLINE-A0513796A

PATIENT
  Age: 78 Year
  Sex: Female

DRUGS (4)
  1. PARNATE [Suspect]
     Indication: DEPRESSION
     Dosage: 10MG TWICE PER DAY
     Route: 048
  2. STELAZINE [Suspect]
     Dosage: 2MG TWICE PER DAY
     Route: 048
  3. ALBUTEROL [Concomitant]
  4. UNIPHYL [Concomitant]

REACTIONS (1)
  - SOMNOLENCE [None]
